FAERS Safety Report 8814754 (Version 6)
Quarter: 2013Q1

REPORT INFORMATION
  Report Type: Report from Study
  Country: US (occurrence: US)
  Receive Date: 20120928
  Receipt Date: 20130219
  Transmission Date: 20140127
  Serious: No
  Sender: FDA-Public Use
  Company Number: US-VERTEX PHARMACEUTICAL INC.-2012-021451

PATIENT
  Age: 53 Year
  Sex: Female
  Weight: 59 kg

DRUGS (4)
  1. VX-950 (TELAPREVIR) [Suspect]
     Indication: HEPATITIS C
     Dosage: 750 MG, TID
     Route: 048
     Dates: start: 20120916
  2. PEGINTRON [Suspect]
     Indication: HEPATITIS C
     Dosage: 120 ?G, WEEKLY
     Route: 058
     Dates: start: 20120916
  3. RIBASPHERE [Suspect]
     Indication: HEPATITIS C
     Dosage: 400 MG IN AM, 600 MG IN PM
     Route: 048
     Dates: start: 20120916
  4. PROTONIX [Concomitant]
     Dosage: 40 MG, UNK
     Route: 048

REACTIONS (27)
  - Abdominal hernia [Unknown]
  - Bronchitis [Unknown]
  - Asthma [Unknown]
  - Depression [Unknown]
  - Disorientation [Unknown]
  - Dizziness [Unknown]
  - Muscle spasms [Unknown]
  - Vertigo [Unknown]
  - Headache [Unknown]
  - Aphagia [Unknown]
  - Skin discolouration [Unknown]
  - Pyrexia [Unknown]
  - Cough [Unknown]
  - Pain [Unknown]
  - Insomnia [Unknown]
  - Weight decreased [Unknown]
  - Alopecia [Unknown]
  - Injection site rash [Unknown]
  - Asthenia [Unknown]
  - Fatigue [Unknown]
  - Rash [Unknown]
  - Anorectal discomfort [Unknown]
  - Diarrhoea [Unknown]
  - Vomiting [Unknown]
  - Pruritus [Unknown]
  - Nausea [Unknown]
  - Dysgeusia [Unknown]
